FAERS Safety Report 8575527-1 (Version None)
Quarter: 2012Q3

REPORT INFORMATION
  Report Type: 
  Country: None (occurrence: None)
  Receive Date: 20120807
  Receipt Date: 20120801
  Transmission Date: 20120928
  Serious: Yes (Other)
  Sender: FDA-Public Use
  Company Number: PHHY2012BR066996

PATIENT
  Sex: Female
  Weight: 65 kg

DRUGS (8)
  1. PREDNISONE [Concomitant]
  2. ATENOLOL [Concomitant]
     Indication: HYPERTENSION
     Dosage: 2 DF, QD
  3. AMITRIPTYLINE HCL [Concomitant]
     Indication: HYPOTONIA
     Dosage: 1 DF, QD (AT NIGHT)
     Route: 048
  4. FAMOTIDINE [Concomitant]
     Indication: RHEUMATOID ARTHRITIS
     Dosage: 1 DF, QD
     Route: 048
  5. NIMESULIDE [Concomitant]
     Indication: RHEUMATOID ARTHRITIS
     Dosage: 100 MG, PRN
  6. DIAZEPAM [Concomitant]
     Indication: SLEEP DISORDER
     Dosage: 1 DF, QD (AT NIGHT)
     Route: 048
  7. HYDROXYCHLOROQUINE SULFATE [Concomitant]
  8. FORMOTEROL FUMARATE [Suspect]
     Indication: ASTHMA
     Dosage: 2 DF, QD
     Dates: start: 20080101

REACTIONS (6)
  - DIZZINESS [None]
  - RESPIRATORY DISTRESS [None]
  - TREMOR [None]
  - BLOOD PRESSURE FLUCTUATION [None]
  - COUGH [None]
  - MALAISE [None]
